FAERS Safety Report 6273185-2 (Version None)
Quarter: 2009Q3

REPORT INFORMATION
  Report Type: 
  Country: None (occurrence: None)
  Receive Date: 20090720
  Receipt Date: 20090710
  Transmission Date: 20100115
  Serious: Yes (Hospitalization)
  Sender: FDA-Public Use
  Company Number: GR-JNJFOC-20090703484

PATIENT
  Age: 54 Year
  Sex: Male
  Weight: 90 kg

DRUGS (3)
  1. PALIPERIDONE [Suspect]
     Indication: SCHIZOPHRENIA
     Route: 048
  2. CIPRALEX [Concomitant]
     Indication: DEPRESSION
     Route: 048
  3. TAVOR [Concomitant]
     Indication: TENSION
     Route: 048

REACTIONS (3)
  - AGGRESSION [None]
  - PARANOIA [None]
  - SEXUAL ACTIVITY INCREASED [None]
